FAERS Safety Report 8483486-5 (Version None)
Quarter: 2012Q3

REPORT INFORMATION
  Report Type: 
  Country: None (occurrence: None)
  Receive Date: 20120702
  Receipt Date: 20120618
  Transmission Date: 20120928
  Serious: Yes (Hospitalization)
  Sender: FDA-Public Use
  Company Number: FR-FRI-1000036710

PATIENT
  Age: 82 Year
  Sex: Female

DRUGS (4)
  1. ESIDRIX [Concomitant]
  2. ATORVASTATIN [Concomitant]
  3. COUMADIN [Suspect]
  4. ESCITALOPRAM [Suspect]
     Dosage: 5 MG
     Route: 048

REACTIONS (9)
  - OEDEMA PERIPHERAL [None]
  - WEIGHT INCREASED [None]
  - INTERNATIONAL NORMALISED RATIO INCREASED [None]
  - HYPONATRAEMIA [None]
  - NAUSEA [None]
  - DYSPNOEA [None]
  - ASCITES [None]
  - ABDOMINAL DISTENSION [None]
  - DRUG INTERACTION [None]
